FAERS Safety Report 18417577 (Version 1)
Quarter: 2020Q4

REPORT INFORMATION
  Report Type: Spontaneous
  Country: US (occurrence: US)
  Receive Date: 20201022
  Receipt Date: 20201022
  Transmission Date: 20210114
  Serious: No
  Sender: FDA-Public Use
  Company Number: 2020SGN03100

PATIENT
  Sex: Female

DRUGS (2)
  1. TUKYSA [Suspect]
     Active Substance: TUCATINIB
     Indication: BREAST CANCER FEMALE
  2. CAPECITABINE. [Suspect]
     Active Substance: CAPECITABINE
     Indication: BREAST CANCER FEMALE

REACTIONS (8)
  - Constipation [Unknown]
  - Fatigue [Unknown]
  - Skin exfoliation [Unknown]
  - Diarrhoea [Unknown]
  - Drug ineffective [Unknown]
  - Vomiting [Unknown]
  - Pain in extremity [Unknown]
  - Erythema [Unknown]
